FAERS Safety Report 25420226 (Version 2)
Quarter: 2025Q3

REPORT INFORMATION
  Report Type: Spontaneous
  Country: US (occurrence: US)
  Receive Date: 20250610
  Receipt Date: 20250721
  Transmission Date: 20251020
  Serious: Yes (Death, Hospitalization, Disabling, Other)
  Sender: JOHNSON AND JOHNSON
  Company Number: US-JNJFOC-20250602089

PATIENT
  Age: 72 Year
  Sex: Female

DRUGS (3)
  1. UPTRAVI [Suspect]
     Active Substance: SELEXIPAG
     Indication: Pulmonary arterial hypertension
     Route: 048
     Dates: start: 202107
  2. AMBRISENTAN [Suspect]
     Active Substance: AMBRISENTAN
     Indication: Pulmonary arterial hypertension
     Dates: start: 201906
  3. AMBRISENTAN [Suspect]
     Active Substance: AMBRISENTAN
     Dates: start: 201911

REACTIONS (10)
  - Death [Fatal]
  - Leg amputation [Unknown]
  - Pulmonary embolism [Not Recovered/Not Resolved]
  - Heart valve replacement [Unknown]
  - Autoimmune disorder [Unknown]
  - Loss of personal independence in daily activities [Unknown]
  - Localised infection [Unknown]
  - Decreased appetite [Not Recovered/Not Resolved]
  - Pulmonary arterial pressure increased [Unknown]
  - Impaired healing [Unknown]
